FAERS Safety Report 7767042-X (Version None)
Quarter: 2011Q3

REPORT INFORMATION
  Report Type: 
  Country: None (occurrence: None)
  Receive Date: 20110922
  Receipt Date: 20101022
  Transmission Date: 20111222
  Serious: No
  Sender: FDA-Public Use
  Company Number: US-ASTRAZENECA-2010SE50445

PATIENT
  Age: 55 Year
  Sex: Male
  Weight: 68 kg

DRUGS (1)
  1. SEROQUEL [Suspect]
     Indication: DEPRESSION
     Route: 048

REACTIONS (1)
  - INTERVERTEBRAL DISC DEGENERATION [None]
